FAERS Safety Report 8387109-5 (Version None)
Quarter: 2012Q2

REPORT INFORMATION
  Report Type: 
  Country: None (occurrence: None)
  Receive Date: 20120525
  Receipt Date: 20120517
  Transmission Date: 20120825
  Serious: Yes (Hospitalization)
  Sender: FDA-Public Use
  Company Number: US-ACTELION-A-US2012-66013

PATIENT

DRUGS (1)
  1. TRACLEER [Suspect]
     Indication: PULMONARY ARTERIAL HYPERTENSION
     Dosage: UNK
     Route: 048
     Dates: start: 20090923

REACTIONS (5)
  - DIABETES MELLITUS [None]
  - BLOOD GLUCOSE DECREASED [None]
  - OROPHARYNGEAL DISCOMFORT [None]
  - TREMOR [None]
  - CARDIAC FAILURE [None]
